FAERS Safety Report 4303530-6 (Version None)
Quarter: 2004Q1

REPORT INFORMATION
  Report Type: 
  Country: None (occurrence: None)
  Receive Date: 20040217
  Receipt Date: 20040130
  Transmission Date: 20041129
  Serious: Yes (Death)
  Sender: FDA-Public Use
  Company Number: 234014

PATIENT
  Age: 28 Year
  Sex: Male
  Weight: 77.1 kg

DRUGS (1)
  1. NOVOSEVEN [Suspect]
     Indication: TRAUMATIC HAEMORRHAGE
     Dosage: 90 UG/KG, SINGLE, INTRAVENOUS
     Route: 042

REACTIONS (2)
  - HAEMODYNAMIC INSTABILITY [None]
  - HYPOTHERMIA [None]
